FAERS Safety Report 5696258-1 (Version None)
Quarter: 2008Q2

REPORT INFORMATION
  Report Type: 
  Country: None (occurrence: None)
  Receive Date: 20080407
  Receipt Date: 20080402
  Transmission Date: 20081010
  Serious: Yes (Hospitalization, Other)
  Sender: FDA-Public Use
  Company Number: NO-WYE-G01306308

PATIENT
  Sex: Female

DRUGS (4)
  1. TRIPHASIL-21 [Suspect]
     Indication: CONTRACEPTION
     Dosage: DOSE UNKNOWN
     Route: 048
     Dates: end: 19980319
  2. ZOLOFT [Suspect]
     Indication: DEPRESSION
     Dates: start: 19980319, end: 19980601
  3. IMOVANE [Concomitant]
     Indication: INSOMNIA
     Route: 048
     Dates: start: 19980319
  4. CIPRAMIL [Suspect]
     Indication: DEPRESSION
     Route: 048
     Dates: start: 19981120, end: 19990601

REACTIONS (7)
  - ANXIETY [None]
  - CONDITION AGGRAVATED [None]
  - DEPRESSION [None]
  - DRUG INTOLERANCE [None]
  - HALLUCINATION [None]
  - POISONING [None]
  - SOCIAL PHOBIA [None]
